FAERS Safety Report 13900705 (Version 2)
Quarter: 2017Q3

REPORT INFORMATION
  Report Type: Report from Study
  Country: CO (occurrence: CO)
  Receive Date: 20170824
  Receipt Date: 20170922
  Transmission Date: 20171127
  Serious: Yes (Other)
  Sender: FDA-Public Use
  Company Number: CO-BAYER-2017-152096

PATIENT
  Age: 52 Year
  Sex: Female

DRUGS (2)
  1. NEXAVAR [Suspect]
     Active Substance: SORAFENIB
     Indication: THYROID CANCER
     Dosage: 600 MG PER DAY
     Route: 048
     Dates: start: 2017, end: 201708
  2. NEXAVAR [Suspect]
     Active Substance: SORAFENIB
     Indication: THYROID CANCER
     Dosage: 800 MG, QD
     Route: 048
     Dates: start: 20170720, end: 20170728

REACTIONS (13)
  - Influenza [None]
  - Rhinalgia [Recovered/Resolved]
  - Pruritus [Not Recovered/Not Resolved]
  - Rhinalgia [Not Recovered/Not Resolved]
  - Influenza [Not Recovered/Not Resolved]
  - Erythema [Recovered/Resolved]
  - Nasal oedema [Not Recovered/Not Resolved]
  - Nasal oedema [Recovered/Resolved]
  - Sinusitis [None]
  - Rash [Not Recovered/Not Resolved]
  - Incorrect drug administration duration [Recovered/Resolved]
  - Rash generalised [Recovered/Resolved]
  - Burning sensation [Not Recovered/Not Resolved]

NARRATIVE: CASE EVENT DATE: 20170724
